FAERS Safety Report 4363152-8 (Version None)
Quarter: 2004Q2

REPORT INFORMATION
  Report Type: 
  Country: None (occurrence: None)
  Receive Date: 20040524
  Receipt Date: 20040217
  Transmission Date: 20050107
  Serious: No
  Sender: FDA-Public Use
  Company Number: US-GLAXOSMITHKLINE-A0498513A

PATIENT
  Sex: Male

DRUGS (1)
  1. BACTROBAN [Suspect]
     Route: 045

REACTIONS (1)
  - CONJUNCTIVAL DISCOLOURATION [None]
